FAERS Safety Report 5889755-7 (Version None)
Quarter: 2008Q3

REPORT INFORMATION
  Report Type: 
  Country: None (occurrence: None)
  Receive Date: 20080919
  Receipt Date: 20080904
  Transmission Date: 20090109
  Serious: Yes (Hospitalization)
  Sender: FDA-Public Use
  Company Number: US-MERCK-0809USA01806

PATIENT
  Age: 67 Year
  Sex: Male

DRUGS (2)
  1. ZOCOR [Suspect]
     Indication: MIXED HYPERLIPIDAEMIA
     Route: 048
     Dates: end: 20010101
  2. OXYGEN [Concomitant]
     Indication: SLEEP APNOEA SYNDROME
     Route: 065

REACTIONS (3)
  - MYALGIA [None]
  - PAIN [None]
  - SLEEP DISORDER [None]
